FAERS Safety Report 8995168 (Version 5)
Quarter: 2013Q1

REPORT INFORMATION
  Report Type: Spontaneous
  Country: JP (occurrence: JP)
  Receive Date: 20130102
  Receipt Date: 20130326
  Transmission Date: 20140127
  Serious: Yes (Hospitalization, Disabling, Other)
  Sender: FDA-Public Use
  Company Number: JP-B.I. PHARMACEUTICALS,INC./RIDGEFIELD-2012-BI-04561NB

PATIENT
  Age: 71 Year
  Sex: Male
  Weight: 60.8 kg

DRUGS (23)
  1. PRADAXA [Suspect]
     Indication: ATRIAL FIBRILLATION
     Dosage: 300 MG
     Route: 048
     Dates: start: 20110608, end: 20110727
  2. PRADAXA [Suspect]
     Dosage: 300 MG
     Route: 048
     Dates: end: 20120330
  3. PRADAXA [Suspect]
     Dosage: 300 MG
     Route: 048
     Dates: start: 20120718, end: 20120727
  4. PRADAXA [Suspect]
     Dosage: 220 MG
     Route: 048
     Dates: start: 20120727, end: 20121212
  5. BEPRICOR [Concomitant]
     Indication: ATRIAL FIBRILLATION
     Dosage: 200 MG
     Route: 065
     Dates: start: 20110608, end: 20111109
  6. ERYTHROMYCIN [Concomitant]
     Indication: COUGH
     Dosage: 400 MG
     Route: 048
     Dates: start: 20110622, end: 20110928
  7. ERYTHROMYCIN [Concomitant]
     Dosage: 400 MG
     Route: 048
     Dates: start: 20120727
  8. SAWATENE [Concomitant]
     Indication: COUGH
     Dosage: 1500 MG
     Route: 065
     Dates: start: 20110622, end: 20110928
  9. SAWATENE [Concomitant]
     Dosage: 1500 MG
     Route: 065
     Dates: start: 20111109, end: 20120330
  10. GENINAX [Concomitant]
     Indication: PNEUMONIA
     Dosage: 400 MG
     Route: 065
     Dates: start: 20120718
  11. RENIVACE [Concomitant]
     Indication: CARDIAC FAILURE
     Dosage: 5 MG
     Route: 048
     Dates: start: 20120718
  12. RENIVACE [Concomitant]
     Dosage: 5 MG
     Route: 048
     Dates: start: 20120727
  13. LUPRAC [Concomitant]
     Indication: CARDIAC FAILURE
     Dosage: 4 MG
     Route: 065
     Dates: start: 20120718
  14. LUPRAC [Concomitant]
     Dosage: 4 MG
     Route: 065
     Dates: start: 20120727
  15. METHYLPREDNISOLONE [Concomitant]
     Indication: INTERSTITIAL LUNG DISEASE
     Dosage: 1 G
     Route: 065
     Dates: start: 20120727, end: 20120729
  16. PREDNISOLONE [Concomitant]
     Indication: INTERSTITIAL LUNG DISEASE
     Route: 065
     Dates: start: 20120730
  17. FLUNASE [Concomitant]
     Indication: COUGH
     Route: 065
     Dates: start: 20110622
  18. SUNRHYTHM [Concomitant]
     Route: 065
     Dates: start: 20111109
  19. TAKEPRON [Concomitant]
     Dosage: 30 MG
     Route: 048
     Dates: start: 20120727
  20. ARTIST [Concomitant]
     Dosage: 5 MG
     Route: 048
     Dates: start: 20121205
  21. HEPARIN [Concomitant]
     Route: 042
  22. WARFARIN POTASSIUM [Concomitant]
     Route: 065
  23. ALESION [Concomitant]
     Dosage: 20 MG
     Route: 048

REACTIONS (7)
  - Cerebral infarction [Recovered/Resolved with Sequelae]
  - Peripheral arterial occlusive disease [Recovered/Resolved with Sequelae]
  - Interstitial lung disease [Unknown]
  - Pulmonary alveolar haemorrhage [Unknown]
  - Peripheral arterial occlusive disease [Unknown]
  - Drug effect incomplete [Unknown]
  - Cough [Unknown]
